FAERS Safety Report 4430948-3 (Version None)
Quarter: 2004Q3

REPORT INFORMATION
  Report Type: 
  Country: None (occurrence: None)
  Receive Date: 20040824
  Receipt Date: 20040819
  Transmission Date: 20050211
  Serious: Yes (Hospitalization, Other)
  Sender: FDA-Public Use
  Company Number: 981106-008014399

PATIENT
  Sex: Female

DRUGS (2)
  1. MICONAZOLE [Suspect]
     Route: 049
     Dates: start: 19970704, end: 19970704
  2. UNKNOWN [Concomitant]

REACTIONS (4)
  - CYANOSIS [None]
  - HYPOTONIA [None]
  - MEDICATION ERROR [None]
  - SUFFOCATION FEELING [None]
